FAERS Safety Report 4487714-2 (Version None)
Quarter: 2004Q4

REPORT INFORMATION
  Report Type: 
  Country: None (occurrence: None)
  Receive Date: 20041027
  Receipt Date: 20041027
  Transmission Date: 20050328
  Serious: Yes (Hospitalization)
  Sender: FDA-Public Use
  Company Number: None

PATIENT
  Age: 68 Year
  Sex: Male
  Weight: 98.8842 kg

DRUGS (6)
  1. METHADONE HCL [Suspect]
     Indication: PAIN
     Dosage: 10 MG PO TID [INPATIENT]
     Route: 048
  2. VICODIN [Concomitant]
  3. TYLENOL [Concomitant]
  4. PIROXICAM [Concomitant]
  5. VALIUM [Concomitant]
  6. FLEXERIL [Concomitant]

REACTIONS (2)
  - CONFUSIONAL STATE [None]
  - HYPERSOMNIA [None]
